FAERS Safety Report 15993839 (Version 1)
Quarter: 2019Q1

REPORT INFORMATION
  Report Type: Spontaneous
  Country: JP (occurrence: JP)
  Receive Date: 20190222
  Receipt Date: 20190222
  Transmission Date: 20190418
  Serious: Yes (Hospitalization, Other)
  Sender: FDA-Public Use
  Company Number: JP-ACCORD-107900

PATIENT
  Age: 73 Year
  Sex: Male
  Weight: 65.7 kg

DRUGS (9)
  1. HYDROXYZINE [Concomitant]
     Active Substance: HYDROXYZINE HYDROCHLORIDE
  2. CANRENOIC ACID/POTASSIUM CANRENOATE [Concomitant]
     Indication: DIURETIC THERAPY
  3. ALLOPURINOL. [Concomitant]
     Active Substance: ALLOPURINOL
  4. SPIRONOLACTONE. [Concomitant]
     Active Substance: SPIRONOLACTONE
     Indication: DIURETIC THERAPY
  5. PEGINTERFERON ALFA-2A. [Concomitant]
     Active Substance: PEGINTERFERON ALFA-2A
     Indication: HEPATITIS C
     Route: 058
  6. FUROSEMIDE. [Suspect]
     Active Substance: FUROSEMIDE
     Indication: OEDEMA PERIPHERAL
  7. IRBESARTAN. [Concomitant]
     Active Substance: IRBESARTAN
     Indication: HYPERTENSION
  8. AMLODIPINE [Concomitant]
     Active Substance: AMLODIPINE BESYLATE
     Indication: HYPERTENSION
  9. TOLVAPTAN [Concomitant]
     Active Substance: TOLVAPTAN
     Indication: DIURETIC THERAPY

REACTIONS (2)
  - Altered state of consciousness [Unknown]
  - Constipation [Unknown]
